FAERS Safety Report 9155768 (Version 2)
Quarter: 2013Q3

REPORT INFORMATION
  Report Type: Spontaneous
  Country: DK (occurrence: DK)
  Receive Date: 20130311
  Receipt Date: 20130813
  Transmission Date: 20140515
  Serious: Yes (Death, Hospitalization)
  Sender: FDA-Public Use
  Company Number: PHHY2013DK022778

PATIENT
  Age: 7 Year
  Sex: Male
  Weight: 26 kg

DRUGS (6)
  1. METHOTREXATE [Suspect]
     Indication: UVEITIS
     Dosage: 7.5 MG, QW
     Route: 048
     Dates: start: 20101110
  2. REMICADE [Suspect]
     Indication: UVEITIS
     Dosage: 125 MG, UNK
     Route: 042
     Dates: start: 20101027, end: 20110204
  3. PREDNISOLONE [Concomitant]
  4. MYDRIACYL [Concomitant]
     Indication: UVEITIS
     Dosage: 2 DF, TID
     Route: 050
     Dates: start: 20100427
  5. COSOPT [Concomitant]
     Indication: GLAUCOMA
     Dosage: 2 DF, BID
     Route: 050
     Dates: start: 20100511
  6. XALATAN [Concomitant]
     Indication: UVEITIS
     Dosage: 2 DF, QD
     Route: 050
     Dates: start: 20101008

REACTIONS (5)
  - Encephalitis [Fatal]
  - Intracranial pressure increased [Fatal]
  - Respiratory failure [Fatal]
  - Varicella [Fatal]
  - Varicella zoster pneumonia [Fatal]
